FAERS Safety Report 16977798 (Version 1)
Quarter: 2019Q4

REPORT INFORMATION
  Report Type: Spontaneous
  Country: FI (occurrence: FI)
  Receive Date: 20191031
  Receipt Date: 20191031
  Transmission Date: 20200122
  Serious: Yes (Disabling)
  Sender: FDA-Public Use
  Company Number: FI-TEVA-2019-FI-1129172

PATIENT
  Age: 52 Year
  Sex: Female

DRUGS (2)
  1. MESTINON [Concomitant]
     Active Substance: PYRIDOSTIGMINE BROMIDE
     Indication: MYASTHENIA GRAVIS
     Dosage: 450,MG,DAILY
     Route: 048
     Dates: start: 2008
  2. PREDNISOLON [Suspect]
     Active Substance: PREDNISOLONE
     Indication: PERICARDITIS
     Route: 048
     Dates: start: 20190729

REACTIONS (3)
  - Wheelchair user [Not Recovered/Not Resolved]
  - Gait inability [Not Recovered/Not Resolved]
  - Walking aid user [Not Recovered/Not Resolved]

NARRATIVE: CASE EVENT DATE: 20190731
